FAERS Safety Report 16234094 (Version 3)
Quarter: 2019Q2

REPORT INFORMATION
  Report Type: Spontaneous
  Country: US (occurrence: US)
  Receive Date: 20190424
  Receipt Date: 20190524
  Transmission Date: 20190711
  Serious: Yes (Other)
  Sender: FDA-Public Use
  Company Number: US-SAOL THERAPEUTICS-2019SAO00143

PATIENT
  Sex: Male
  Weight: 70.3 kg

DRUGS (8)
  1. LIORESAL [Suspect]
     Active Substance: BACLOFEN
     Indication: HEMIPARESIS
     Dosage: UNK
     Route: 037
  2. BACLOFEN. [Concomitant]
     Active Substance: BACLOFEN
     Route: 048
  3. LIORESAL [Suspect]
     Active Substance: BACLOFEN
     Indication: MUSCLE SPASTICITY
  4. ASPIRIN. [Concomitant]
     Active Substance: ASPIRIN
  5. LEXAPRO [Concomitant]
     Active Substance: ESCITALOPRAM OXALATE
  6. ATORVASTATIN [Concomitant]
     Active Substance: ATORVASTATIN
  7. COQ10 [Concomitant]
     Active Substance: UBIDECARENONE
  8. ELIQUIS [Concomitant]
     Active Substance: APIXABAN

REACTIONS (1)
  - Atrial fibrillation [Recovered/Resolved]

NARRATIVE: CASE EVENT DATE: 20190415
